FAERS Safety Report 18439621 (Version 1)
Quarter: 2020Q4

REPORT INFORMATION
  Report Type: Spontaneous
  Country: US (occurrence: US)
  Receive Date: 20201029
  Receipt Date: 20201029
  Transmission Date: 20210114
  Serious: Yes (Hospitalization)
  Sender: FDA-Public Use
  Company Number: US-ROCHE-2704573

PATIENT
  Sex: Female

DRUGS (11)
  1. DONEPEZIL. [Concomitant]
     Active Substance: DONEPEZIL
  2. ASPIRIN. [Concomitant]
     Active Substance: ASPIRIN
  3. METHIMAZOLE. [Concomitant]
     Active Substance: METHIMAZOLE
  4. LIPITOR [Concomitant]
     Active Substance: ATORVASTATIN CALCIUM
  5. VITAMIN D3 [Concomitant]
     Active Substance: CHOLECALCIFEROL
  6. FUROSEMIDE. [Concomitant]
     Active Substance: FUROSEMIDE
  7. ALECENSA [Suspect]
     Active Substance: ALECTINIB HYDROCHLORIDE
     Indication: LUNG NEOPLASM MALIGNANT
     Route: 048
     Dates: start: 20181011
  8. LASIX [Concomitant]
     Active Substance: FUROSEMIDE
  9. ATORVASTATIN [Concomitant]
     Active Substance: ATORVASTATIN
  10. NYSTATIN. [Concomitant]
     Active Substance: NYSTATIN
  11. MIRTAZAPINE. [Concomitant]
     Active Substance: MIRTAZAPINE

REACTIONS (2)
  - Product dose omission issue [Unknown]
  - Chest pain [Unknown]
